FAERS Safety Report 7664356 (Version 4)
Quarter: 2016Q4

REPORT INFORMATION
  Report Type: Report from Study
  Country: CH (occurrence: CH)
  Receive Date: 20101111
  Receipt Date: 20161201
  Transmission Date: 20170207
  Serious: Yes (Other)
  Sender: FDA-Public Use
  Company Number: PHHO2010CH16354

PATIENT
  Sex: Female

DRUGS (4)
  1. NO TREATMENT RECEIVED [Suspect]
     Active Substance: UNSPECIFIED INGREDIENT
     Indication: HEPATIC CANCER
     Dosage: NO TREATMENT
     Route: 065
  2. RAD001 [Suspect]
     Active Substance: EVEROLIMUS
     Indication: HEPATIC CANCER
     Dosage: UNK
     Route: 048
     Dates: start: 20100831, end: 20100910
  3. RAD001 [Suspect]
     Active Substance: EVEROLIMUS
     Dosage: UNK
     Route: 048
     Dates: start: 20100911, end: 20100921
  4. RAD001 [Suspect]
     Active Substance: EVEROLIMUS
     Dosage: UNK
     Route: 048
     Dates: start: 20100922, end: 20100928

REACTIONS (4)
  - Anaemia [Recovered/Resolved]
  - Haemorrhage [Recovered/Resolved]
  - Pain [Recovered/Resolved]
  - Haemangioma [Recovered/Resolved]

NARRATIVE: CASE EVENT DATE: 20101022
